FAERS Safety Report 13377554 (Version 3)
Quarter: 2017Q2

REPORT INFORMATION
  Report Type: Spontaneous
  Country: CN (occurrence: CN)
  Receive Date: 20170328
  Receipt Date: 20170427
  Transmission Date: 20170830
  Serious: Yes (Other)
  Sender: FDA-Public Use
  Company Number: CN-JNJFOC-20170323438

PATIENT
  Age: 32 Year
  Sex: Female

DRUGS (2)
  1. RISPERDAL [Suspect]
     Active Substance: RISPERIDONE
     Indication: SCHIZOPHRENIA
     Dosage: 1.5 MG IN THE MORNING AND 2 MG IN THE EVENING
     Route: 065
     Dates: start: 2012, end: 201610
  2. RISPERDAL [Suspect]
     Active Substance: RISPERIDONE
     Indication: SCHIZOPHRENIA
     Dosage: 1.5 MG IN THE MORNING AND 2 MG IN THE EVENING
     Route: 065
     Dates: start: 201701

REACTIONS (3)
  - Abortion induced [Unknown]
  - Exposure during pregnancy [Unknown]
  - Irritability [Recovered/Resolved]

NARRATIVE: CASE EVENT DATE: 2016
